FAERS Safety Report 15579674 (Version 2)
Quarter: 2018Q4

REPORT INFORMATION
  Report Type: Spontaneous
  Country: US (occurrence: US)
  Receive Date: 20181102
  Receipt Date: 20181116
  Transmission Date: 20190205
  Serious: No
  Sender: FDA-Public Use
  Company Number: US-ASTRAZENECA-2018SF30143

PATIENT
  Age: 27932 Day
  Sex: Male
  Weight: 87.1 kg

DRUGS (1)
  1. SYMBICORT [Suspect]
     Active Substance: BUDESONIDE\FORMOTEROL FUMARATE DIHYDRATE
     Indication: ASTHMA
     Dosage: 160/4.5 MCG 2 INHALATIONS TWICE A DAY
     Route: 055

REACTIONS (4)
  - Intentional device misuse [Unknown]
  - Device malfunction [Unknown]
  - Product packaging quantity issue [Unknown]
  - Off label use of device [Unknown]

NARRATIVE: CASE EVENT DATE: 20181001
